FAERS Safety Report 6170338-9 (Version None)
Quarter: 2009Q2

REPORT INFORMATION
  Report Type: 
  Country: None (occurrence: None)
  Receive Date: 20090427
  Receipt Date: 20090427
  Transmission Date: 20091009
  Serious: Yes (Other)
  Sender: FDA-Public Use
  Company Number: None

PATIENT
  Sex: Male
  Weight: 32 kg

DRUGS (2)
  1. CONCERTA [Suspect]
     Indication: ATTENTION DEFICIT/HYPERACTIVITY DISORDER
     Dosage: 18MG PO DAILY
     Route: 048
     Dates: start: 20090120
  2. ABILIFY [Suspect]
     Indication: AGGRESSION
     Dosage: 10 MG PO DAILY
     Route: 048
     Dates: start: 20090122

REACTIONS (2)
  - AGGRESSION [None]
  - DYSTONIA [None]
